FAERS Safety Report 20132468 (Version 1)
Quarter: 2021Q4

REPORT INFORMATION
  Report Type: Spontaneous
  Country: US (occurrence: US)
  Receive Date: 20211130
  Receipt Date: 20211130
  Transmission Date: 20220304
  Serious: No
  Sender: FDA-Public Use
  Company Number: US-MYLANLABS-2021M1075138

PATIENT
  Age: 74 Year
  Sex: Male

DRUGS (2)
  1. DIPENTUM [Suspect]
     Active Substance: OLSALAZINE SODIUM
     Indication: Product used for unknown indication
     Dosage: UNK
  2. IMODIUM [Concomitant]
     Active Substance: LOPERAMIDE HYDROCHLORIDE
     Dosage: UNK

REACTIONS (2)
  - Frequent bowel movements [Unknown]
  - Diarrhoea [Unknown]
